FAERS Safety Report 19156362 (Version 1)
Quarter: 2021Q2

REPORT INFORMATION
  Report Type: Spontaneous
  Country: IN (occurrence: IN)
  Receive Date: 20210419
  Receipt Date: 20210419
  Transmission Date: 20210717
  Serious: Yes (Disabling, Other)
  Sender: FDA-Public Use
  Company Number: IN-FRESENIUS KABI-FK202103945

PATIENT
  Age: 28 Year
  Sex: Male

DRUGS (2)
  1. TRIAMCINOLONE [Suspect]
     Active Substance: TRIAMCINOLONE
     Indication: ENDOCRINE OPHTHALMOPATHY
     Route: 050
  2. METHYLPREDNISOLONE (MANUFACTURER UNKNOWN) [Suspect]
     Active Substance: METHYLPREDNISOLONE
     Indication: ENDOCRINE OPHTHALMOPATHY
     Route: 042

REACTIONS (2)
  - Eye abscess [Recovered/Resolved with Sequelae]
  - Aspergillus infection [Recovered/Resolved with Sequelae]
